FAERS Safety Report 4847572-0 (Version None)
Quarter: 2005Q4

REPORT INFORMATION
  Report Type: 
  Country: None (occurrence: None)
  Receive Date: 20051205
  Receipt Date: 20051108
  Transmission Date: 20060501
  Serious: Yes (Other)
  Sender: FDA-Public Use
  Company Number: 05UK 0180

PATIENT
  Age: 83 Year
  Sex: Female

DRUGS (6)
  1. AGGRASTAT [Suspect]
     Indication: CHEST PAIN
     Dosage: AS PER LABELING
     Dates: start: 20050830, end: 20050831
  2. HEPARIN [Concomitant]
  3. CALCICHEW (CALCIUM CARBONATE) [Concomitant]
  4. BENDROFLUMETHIAZIDE (BENDROFLUMETHIAZIDE) [Concomitant]
  5. LEVOTHYROXINE SODIUM [Concomitant]
  6. PREDNISONE [Concomitant]

REACTIONS (4)
  - CATHETER SITE HAEMORRHAGE [None]
  - DISSEMINATED INTRAVASCULAR COAGULATION [None]
  - HAEMATOMA [None]
  - INTERNATIONAL NORMALISED RATIO INCREASED [None]
